FAERS Safety Report 25720299 (Version 1)
Quarter: 2025Q3

REPORT INFORMATION
  Report Type: Report from Study
  Country: US (occurrence: US)
  Receive Date: 20250825
  Receipt Date: 20250825
  Transmission Date: 20251021
  Serious: No
  Sender: ACADIA PHARMACEUTICALS
  Company Number: US-ACADIA PHARMACEUTICALS INC.-ACA-2025-PIM-009428

PATIENT
  Age: 73 Year
  Sex: Female

DRUGS (16)
  1. NUPLAZID [Suspect]
     Active Substance: PIMAVANSERIN TARTRATE
     Indication: Parkinson^s disease
     Dosage: 34 MILLIGRAM, QD
     Route: 048
     Dates: start: 20250522
  2. CARBIDOPA\LEVODOPA [Concomitant]
     Active Substance: CARBIDOPA\LEVODOPA
  3. MEMANTINE [Concomitant]
     Active Substance: MEMANTINE
  4. STOOL SOFTENER (DOCUSATE) [Concomitant]
     Active Substance: DOCUSATE
  5. ATORVASTATIN [Concomitant]
     Active Substance: ATORVASTATIN
  6. LEVOCETIRIZINE [Concomitant]
     Active Substance: LEVOCETIRIZINE
  7. MONTELUKAST [Concomitant]
     Active Substance: MONTELUKAST
  8. BUPROPION [Concomitant]
     Active Substance: BUPROPION
  9. PANTOPRAZOLE [Concomitant]
     Active Substance: PANTOPRAZOLE
  10. MYRBETRIQ [Concomitant]
     Active Substance: MIRABEGRON
  11. GABAPENTIN [Concomitant]
     Active Substance: GABAPENTIN
  12. VITAMINS [Concomitant]
     Active Substance: VITAMINS
  13. TIZANIDINE [Concomitant]
     Active Substance: TIZANIDINE
  14. CELECOXIB [Concomitant]
     Active Substance: CELECOXIB
  15. CIPRO [Concomitant]
     Active Substance: CIPROFLOXACIN HYDROCHLORIDE
  16. VITAMIN D3 [Concomitant]
     Active Substance: CHOLECALCIFEROL

REACTIONS (2)
  - Urinary tract infection [Not Recovered/Not Resolved]
  - Confusional state [Not Recovered/Not Resolved]

NARRATIVE: CASE EVENT DATE: 20250814
